FAERS Safety Report 4779081-1 (Version None)
Quarter: 2005Q3

REPORT INFORMATION
  Report Type: 
  Country: None (occurrence: None)
  Receive Date: 20050923
  Receipt Date: 20050914
  Transmission Date: 20060218
  Serious: Yes (Death, Other)
  Sender: FDA-Public Use
  Company Number: 2005-09-0830

PATIENT
  Age: 44 Year
  Sex: Male

DRUGS (5)
  1. PEG-INTERFERON ALFA-2B  INJECTABLE [Suspect]
     Indication: DISEASE RECURRENCE
     Dosage: 0.97 UG/KG QW SUBCUTANEO
     Route: 058
  2. PEG-INTERFERON ALFA-2B  INJECTABLE [Suspect]
     Indication: HEPATITIS C
     Dosage: 0.97 UG/KG QW SUBCUTANEO
     Route: 058
  3. RIBAVIRIN [Suspect]
     Indication: DISEASE RECURRENCE
     Dosage: 800 MG ORAL
     Route: 048
  4. RIBAVIRIN [Suspect]
     Indication: HEPATITIS C
     Dosage: 800 MG ORAL
     Route: 048
  5. CYCLOSPORINE [Concomitant]

REACTIONS (9)
  - COAGULOPATHY [None]
  - CONVULSION [None]
  - GOODPASTURE'S SYNDROME [None]
  - HAEMOGLOBIN DECREASED [None]
  - HEPATIC FAILURE [None]
  - IMMUNOSUPPRESSION [None]
  - NEUTROPENIA [None]
  - RENAL FAILURE [None]
  - THROMBOCYTOPENIA [None]
